FAERS Safety Report 8611717-7 (Version None)
Quarter: 2012Q3

REPORT INFORMATION
  Report Type: 
  Country: None (occurrence: None)
  Receive Date: 20120822
  Receipt Date: 20120814
  Transmission Date: 20120928
  Serious: Yes (Life-Threatening)
  Sender: FDA-Public Use
  Company Number: US-BAYER-2011-024121

PATIENT
  Age: 47 Year
  Sex: Female

DRUGS (6)
  1. YAZ [Suspect]
  2. ALEVE [Concomitant]
     Indication: DYSMENORRHOEA
  3. VITAMIN TAB [Concomitant]
  4. IBUPROFEN [Concomitant]
     Dosage: 800 MG, UNK
  5. IBUPROFEN [Concomitant]
     Indication: HAEMORRHAGE
     Dosage: 400 MG, UNK
  6. ALEVE [Concomitant]
     Indication: MENORRHAGIA

REACTIONS (2)
  - INJURY [None]
  - DEEP VEIN THROMBOSIS [None]
